FAERS Safety Report 23541430 (Version 2)
Quarter: 2024Q2

REPORT INFORMATION
  Report Type: Spontaneous
  Country: JP (occurrence: JP)
  Receive Date: 20240219
  Receipt Date: 20240403
  Transmission Date: 20240716
  Serious: Yes (Hospitalization, Other)
  Sender: FDA-Public Use
  Company Number: JP-SA-SAC20240216001530

PATIENT
  Age: 38 Year
  Sex: Female
  Weight: 89 kg

DRUGS (11)
  1. MYSTAN [Suspect]
     Active Substance: CLOBAZAM
     Indication: Epilepsy
     Dosage: UNK UNK, QW
     Route: 048
  2. MYSTAN [Suspect]
     Active Substance: CLOBAZAM
     Dosage: 10 MG, Q12H
     Route: 048
     Dates: start: 20080104, end: 20100716
  3. MYSTAN [Suspect]
     Active Substance: CLOBAZAM
     Dosage: 25 MG, QD
     Route: 048
     Dates: start: 20100716, end: 20161007
  4. MYSTAN [Suspect]
     Active Substance: CLOBAZAM
     Dosage: 15 MG, Q12H
     Route: 048
     Dates: start: 20161007
  5. MYSTAN [Suspect]
     Active Substance: CLOBAZAM
     Dosage: 35 MG, QD
     Route: 048
  6. MYSTAN [Suspect]
     Active Substance: CLOBAZAM
     Dosage: 20 MG, Q12H
     Route: 048
     Dates: start: 20181214
  7. ZONISAMIDE [Suspect]
     Active Substance: ZONISAMIDE
     Indication: Epilepsy
     Dosage: 300 MG, QD
     Route: 048
     Dates: start: 20071116, end: 20190417
  8. ZONISAMIDE [Suspect]
     Active Substance: ZONISAMIDE
     Dosage: 200 MG, BID
     Route: 048
     Dates: start: 20190418, end: 20240215
  9. ZONISAMIDE [Suspect]
     Active Substance: ZONISAMIDE
     Dosage: UNK
     Route: 048
     Dates: start: 20240118, end: 20240215
  10. VALPROATE SODIUM [Concomitant]
     Active Substance: VALPROATE SODIUM
     Indication: Product used for unknown indication
     Dosage: UNK
     Route: 065
     Dates: start: 19980916, end: 19980917
  11. TEGRETOL [Concomitant]
     Active Substance: CARBAMAZEPINE
     Indication: Product used for unknown indication
     Dosage: UNK
     Route: 065
     Dates: start: 20071102, end: 20071116

REACTIONS (1)
  - Nephrolithiasis [Recovering/Resolving]

NARRATIVE: CASE EVENT DATE: 20240115
